FAERS Safety Report 9658753 (Version 2)
Quarter: 2013Q4

REPORT INFORMATION
  Report Type: Spontaneous
  Country: US (occurrence: US)
  Receive Date: 20131030
  Receipt Date: 20131030
  Transmission Date: 20140711
  Serious: No
  Sender: FDA-Public Use
  Company Number: US-PURDUE-USA-2010-0054819

PATIENT
  Age: 59 Year
  Sex: Female
  Weight: 77.1 kg

DRUGS (6)
  1. OXYCONTIN (NDA 22-272) [Suspect]
     Indication: INTERVERTEBRAL DISC PROTRUSION
     Dosage: 240 MG, DAILY
     Dates: start: 20100911
  2. OXYCONTIN (NDA 22-272) [Suspect]
     Indication: VASCULITIS
     Dosage: 160 MG, BID
     Route: 048
  3. OXYCONTIN (NDA 22-272) [Suspect]
     Indication: CRYOGLOBULINAEMIA
  4. OXYCONTIN (NDA 22-272) [Suspect]
     Indication: ARTHRITIS
  5. OXYCONTIN (NDA 22-272) [Suspect]
     Indication: GASTRITIS
  6. OXYCONTIN (NDA 22-272) [Suspect]
     Indication: PERITONITIS

REACTIONS (7)
  - Dysstasia [Unknown]
  - Back pain [Unknown]
  - Pain [Unknown]
  - Activities of daily living impaired [Not Recovered/Not Resolved]
  - Inadequate analgesia [Not Recovered/Not Resolved]
  - Therapeutic response delayed [Not Recovered/Not Resolved]
  - Drug effect decreased [Unknown]
